FAERS Safety Report 21218959 (Version 7)
Quarter: 2023Q2

REPORT INFORMATION
  Report Type: Report from Study
  Country: CN (occurrence: CN)
  Receive Date: 20220816
  Receipt Date: 20230420
  Transmission Date: 20230722
  Serious: Yes (Hospitalization)
  Sender: FDA-Public Use
  Company Number: CN-KARYOPHARM-2022KPT000920

PATIENT
  Age: 69 Year
  Sex: Female
  Weight: 58 kg

DRUGS (24)
  1. SELINEXOR [Suspect]
     Active Substance: SELINEXOR
     Indication: Diffuse large B-cell lymphoma
     Dosage: 40 MG, WEEKLY DAYS 1 AND 8 OF A 21-DAY CYCLE
     Route: 048
     Dates: start: 20220608, end: 20220706
  2. SELINEXOR [Suspect]
     Active Substance: SELINEXOR
     Dosage: 20 MG, WEEKLY DAYS 1 AND 8 OF A 21-DAY CYCLE
     Route: 048
     Dates: start: 20220707
  3. RITUXIMAB [Suspect]
     Active Substance: RITUXIMAB
     Indication: Diffuse large B-cell lymphoma
     Dosage: 375 MG/M2, 1X/3 WEEKS DAY 1 OF A 21-DAY CYCLE
     Route: 042
     Dates: start: 20220608
  4. GEMCITABINE [Suspect]
     Active Substance: GEMCITABINE
     Indication: Diffuse large B-cell lymphoma
     Dosage: 1000 MG/M2, DAYS 1 AND 8 OF A 21-DAY CYCLE
     Route: 042
     Dates: start: 20220608
  5. DEXAMETHASONE [Suspect]
     Active Substance: DEXAMETHASONE
     Indication: Diffuse large B-cell lymphoma
     Dosage: 20 MG, DAYS 1, 2, 3, AND 4 OF A 21 DAY CYCLE
     Route: 048
     Dates: start: 20220608
  6. DEXAMETHASONE [Suspect]
     Active Substance: DEXAMETHASONE
     Dosage: 20 MG, DAY 1 AND 2 OF A 21-DAY CYCLE
     Route: 048
     Dates: start: 20220723
  7. DEXAMETHASONE [Suspect]
     Active Substance: DEXAMETHASONE
     Dosage: 40 MG, DAY 3 AND 4 OF A 21-DAY CYCLE
     Route: 048
     Dates: start: 20220725
  8. CISPLATIN [Suspect]
     Active Substance: CISPLATIN
     Indication: Diffuse large B-cell lymphoma
     Dosage: 56 MG/M2, 1X/3 WEEKS DAY 1 OF 21-DAY CYCLE
     Route: 042
     Dates: start: 20220608
  9. CISPLATIN [Suspect]
     Active Substance: CISPLATIN
     Dosage: 44 MG, 1X/3 WEEKS
     Route: 042
     Dates: start: 20220723, end: 20220815
  10. CISPLATIN [Suspect]
     Active Substance: CISPLATIN
     Dosage: 28 MG/M2
     Route: 042
     Dates: start: 20220816
  11. CARBOPLATIN [Suspect]
     Active Substance: CARBOPLATIN
     Indication: Diffuse large B-cell lymphoma
     Dosage: 5 AUC, 1X/3 WEEKS
     Route: 042
     Dates: start: 20220629, end: 20220629
  12. MECAPEGFILGRASTIM [Concomitant]
     Active Substance: MECAPEGFILGRASTIM
     Indication: Prophylaxis
     Dosage: 6 MG, SINGLE
     Route: 058
     Dates: start: 20220708, end: 20220708
  13. MECAPEGFILGRASTIM [Concomitant]
     Active Substance: MECAPEGFILGRASTIM
     Dosage: 6 MG, QD
     Route: 058
     Dates: start: 20220731, end: 20220731
  14. PALONOSETRON HYDROCHLORIDE [Concomitant]
     Active Substance: PALONOSETRON HYDROCHLORIDE
     Indication: Prophylaxis of nausea and vomiting
     Dosage: 0.5 MG, SINGLE
     Route: 042
     Dates: start: 20220707, end: 20220707
  15. NETUPITANT\PALONOSETRON [Concomitant]
     Active Substance: NETUPITANT\PALONOSETRON
     Indication: Prophylaxis of nausea and vomiting
     Dosage: 0.5 MG, ONCE D1/D8
     Route: 048
     Dates: start: 20220723, end: 20220723
  16. NETUPITANT\PALONOSETRON [Concomitant]
     Active Substance: NETUPITANT\PALONOSETRON
     Dosage: 1 DOSAGE FORM, SINGLE
     Route: 048
     Dates: start: 20220730, end: 20220730
  17. LACTULOSE [Concomitant]
     Active Substance: LACTULOSE
     Indication: Constipation
     Dosage: 20 ML, PRN
     Route: 048
     Dates: start: 20220609
  18. FUROSEMIDE [Concomitant]
     Active Substance: FUROSEMIDE
     Indication: Oedema
     Dosage: 10 MG, SINGLE
     Route: 015
     Dates: start: 20220724, end: 20220724
  19. ERYTHROPOIETIN [Concomitant]
     Active Substance: ERYTHROPOIETIN
     Indication: Anaemia
     Dosage: 3000 IU, SINGLE
     Route: 058
     Dates: start: 20220722, end: 20220722
  20. ERYTHROPOIETIN [Concomitant]
     Active Substance: ERYTHROPOIETIN
     Dosage: 3000 IU, SINGLE
     Route: 058
     Dates: start: 20220725, end: 20220725
  21. ERYTHROPOIETIN [Concomitant]
     Active Substance: ERYTHROPOIETIN
     Dosage: 3000 IU, SINGLE
     Route: 058
     Dates: start: 20220731, end: 20220731
  22. ERYTHROPOIETIN [Concomitant]
     Active Substance: ERYTHROPOIETIN
     Dosage: 5000 IU, SINGLE
     Route: 058
     Dates: start: 20220805, end: 20220805
  23. MOSAPRIDE CITRATE [Concomitant]
     Active Substance: MOSAPRIDE CITRATE
     Indication: Prophylaxis
     Dosage: 5 MG, TID
     Route: 048
     Dates: start: 20220705
  24. ELTROMBOPAG OLAMINE [Concomitant]
     Active Substance: ELTROMBOPAG OLAMINE
     Dosage: 2.5 MG, BID
     Route: 048
     Dates: start: 20220705

REACTIONS (1)
  - Anaemia [Not Recovered/Not Resolved]

NARRATIVE: CASE EVENT DATE: 20220806
